FAERS Safety Report 13926616 (Version 2)
Quarter: 2017Q3

REPORT INFORMATION
  Report Type: Report from Study
  Country: ES (occurrence: ES)
  Receive Date: 20170831
  Receipt Date: 20170905
  Transmission Date: 20171127
  Serious: Yes (Life-Threatening, Hospitalization)
  Sender: FDA-Public Use
  Company Number: ES-PFIZER INC-2017374882

PATIENT
  Age: 47 Year
  Sex: Female

DRUGS (5)
  1. BROMAZEPAM [Interacting]
     Active Substance: BROMAZEPAM
     Dosage: 11MG (11 CAPSULES)
     Route: 048
     Dates: start: 20170215, end: 20170215
  2. LYRICA [Suspect]
     Active Substance: PREGABALIN
     Dosage: 525 MG (7 CAPSULES)
     Route: 048
     Dates: start: 20170215, end: 20170215
  3. METOCLOPRAMIDA [Interacting]
     Active Substance: METOCLOPRAMIDE HYDROCHLORIDE
     Dosage: 50MG (5 CAPSULES)
     Route: 048
     Dates: start: 20170215, end: 20170215
  4. FENTANYL. [Concomitant]
     Active Substance: FENTANYL
     Indication: CANCER PAIN
     Dosage: 1 PATCH EACH 72H
     Route: 062
     Dates: start: 20170215, end: 20170215
  5. PARACETAMOL [Interacting]
     Active Substance: ACETAMINOPHEN
     Dosage: 30 CAPSULES
     Route: 048
     Dates: start: 20170215, end: 20170215

REACTIONS (5)
  - Intentional overdose [Unknown]
  - Depressed level of consciousness [Recovered/Resolved]
  - Suicide attempt [Unknown]
  - Drug interaction [Not Recovered/Not Resolved]
  - Acute hepatic failure [Recovered/Resolved]

NARRATIVE: CASE EVENT DATE: 20170215
